FAERS Safety Report 9435221 (Version 1)
Quarter: 2013Q3

REPORT INFORMATION
  Report Type: Spontaneous
  Country: BR (occurrence: BR)
  Receive Date: 20130801
  Receipt Date: 20130801
  Transmission Date: 20140515
  Serious: Yes (Other)
  Sender: FDA-Public Use
  Company Number: BR-JNJFOC-20130715160

PATIENT
  Age: 52 Year
  Sex: Female
  Weight: 68 kg

DRUGS (11)
  1. REMICADE [Suspect]
     Indication: ANKYLOSING SPONDYLITIS
     Route: 042
     Dates: start: 20130704
  2. REMICADE [Suspect]
     Indication: ANKYLOSING SPONDYLITIS
     Route: 042
  3. ATENOLOL [Concomitant]
     Indication: HYPERTENSION
     Route: 065
  4. OLMETEC [Concomitant]
     Indication: HYPERTENSION
     Route: 065
  5. ALDACTONE [Concomitant]
     Indication: HYPERTENSION
     Route: 065
  6. TECNOMET [Concomitant]
     Indication: ANKYLOSING SPONDYLITIS
     Route: 065
     Dates: start: 2010
  7. CELEBRA [Concomitant]
     Indication: ANTIINFLAMMATORY THERAPY
     Route: 065
     Dates: start: 2010
  8. NORETHISTERONE [Concomitant]
     Route: 065
  9. SIMVASTATIN [Concomitant]
     Indication: HYPERCHOLESTEROLAEMIA
     Route: 065
     Dates: start: 2010
  10. PANTOPRAZOLE [Concomitant]
     Indication: GASTRIC DISORDER
     Route: 065
     Dates: start: 2010
  11. YASMIN [Concomitant]
     Route: 065

REACTIONS (2)
  - Hypoaesthesia [Not Recovered/Not Resolved]
  - Fatigue [Not Recovered/Not Resolved]
